FAERS Safety Report 5318578-2 (Version None)
Quarter: 2007Q1

REPORT INFORMATION
  Report Type: 
  Country: None (occurrence: None)
  Receive Date: 20070201
  Receipt Date: 20061115
  Transmission Date: 20070707
  Serious: No
  Sender: FDA-Public Use
  Company Number: 471718

PATIENT
  Age: 62 Year
  Sex: Female

DRUGS (3)
  1. BONIVA [Suspect]
     Indication: OSTEOPOROSIS
     Dosage: INTRAVENOUS
     Route: 042
  2. BONIVA [Suspect]
     Indication: OSTEOPOROSIS
     Dosage: ORAL
     Route: 048
  3. IVIG (NORMAL IMMUNOGLOBULIN) [Concomitant]

REACTIONS (9)
  - DENTAL CARIES [None]
  - DIZZINESS [None]
  - DRUG INTOLERANCE [None]
  - GINGIVAL ABSCESS [None]
  - GINGIVAL DISORDER [None]
  - IMPAIRED HEALING [None]
  - INFECTION [None]
  - TOOTH DISORDER [None]
  - TOOTHACHE [None]
